FAERS Safety Report 8537504-6 (Version None)
Quarter: 2012Q3

REPORT INFORMATION
  Report Type: 
  Country: None (occurrence: None)
  Receive Date: 20120725
  Receipt Date: 20120717
  Transmission Date: 20120928
  Serious: Yes (Death, Other)
  Sender: FDA-Public Use
  Company Number: US-BAXTER-2012BAX011734

PATIENT
  Sex: Male

DRUGS (4)
  1. DIANEAL [Suspect]
     Indication: PERITONEAL DIALYSIS
     Route: 033
     Dates: end: 20120717
  2. VELCADE [Concomitant]
     Indication: MULTIPLE MYELOMA
     Route: 065
  3. DIANEAL LOW CALCIUM W/ DEXTROSE 1.5% [Suspect]
     Indication: PERITONEAL DIALYSIS
     Route: 033
     Dates: end: 20120717
  4. DIANEAL [Suspect]
     Route: 033
     Dates: end: 20120717

REACTIONS (2)
  - MULTIPLE MYELOMA [None]
  - DEATH [None]
